FAERS Safety Report 13532850 (Version 1)
Quarter: 2017Q2

REPORT INFORMATION
  Report Type: Spontaneous
  Country: US (occurrence: US)
  Receive Date: 20170510
  Receipt Date: 20170510
  Transmission Date: 20170830
  Serious: Yes (Other)
  Sender: FDA-Public Use
  Company Number: US-PFIZER INC-2017203405

PATIENT
  Age: 14 Year
  Sex: Female
  Weight: 35 kg

DRUGS (7)
  1. GENOTROPIN MQ [Suspect]
     Active Substance: SOMATROPIN
     Indication: GROWTH HORMONE DEFICIENCY
     Dosage: 1.4 MG AND 1.6MG, 1X/DAY, ALTERNATE DAY
     Route: 058
     Dates: start: 201208
  2. POLYCITRA-K [Concomitant]
     Dosage: UNK
  3. POLYCITRA [Concomitant]
     Dosage: UNK
  4. VITAMIN D3 [Concomitant]
     Active Substance: CHOLECALCIFEROL
     Dosage: 1000 IU, 1X/DAY (2.5)
     Route: 048
  5. PROBIOTICS [Concomitant]
     Active Substance: PROBIOTICS NOS
     Dosage: UNK UNK, 1X/DAY (2 GUMMIES)
     Route: 048
  6. HYDROCHLOROTHIAZIDE. [Concomitant]
     Active Substance: HYDROCHLOROTHIAZIDE
     Dosage: UNK UNK, 2X/DAY [5 MG AM AND 10 MG PM]
     Route: 048
  7. HYDROCHLOROTHIAZIDE. [Concomitant]
     Active Substance: HYDROCHLOROTHIAZIDE
     Dosage: 50 MG, UNK
     Route: 048

REACTIONS (6)
  - Lyme disease [Unknown]
  - Headache [Unknown]
  - Injection site bruising [Unknown]
  - Dizziness postural [Unknown]
  - Arthralgia [Unknown]
  - Abdominal pain upper [Unknown]
